FAERS Safety Report 13513309 (Version 1)
Quarter: 2017Q2

REPORT INFORMATION
  Report Type: Spontaneous
  Country: US (occurrence: US)
  Receive Date: 20170504
  Receipt Date: 20170504
  Transmission Date: 20170830
  Serious: Yes (Other)
  Sender: FDA-Public Use
  Company Number: US-BAYER-2017-079443

PATIENT
  Age: 29 Year
  Sex: Female

DRUGS (1)
  1. MIRENA [Suspect]
     Active Substance: LEVONORGESTREL
     Dosage: 20 MCG/24HR, CONT
     Route: 015
     Dates: start: 2008

REACTIONS (11)
  - Cardiac aneurysm [None]
  - Spinal cord injury [None]
  - Abdominal discomfort [None]
  - Intracranial aneurysm [None]
  - Device expulsion [None]
  - Alopecia [None]
  - Aortic aneurysm [None]
  - Air embolism [None]
  - Cardiac disorder [None]
  - Amenorrhoea [None]
  - Intracranial pressure increased [None]

NARRATIVE: CASE EVENT DATE: 2013
